FAERS Safety Report 4325035-9 (Version None)
Quarter: 2004Q1

REPORT INFORMATION
  Report Type: 
  Country: None (occurrence: None)
  Receive Date: 20040326
  Receipt Date: 20040326
  Transmission Date: 20041129
  Serious: Yes (Hospitalization, Disabling)
  Sender: FDA-Public Use
  Company Number: None

PATIENT
  Sex: Male
  Weight: 13.6079 kg

DRUGS (1)
  1. ZOLOFT [Suspect]
     Indication: DEPRESSION
     Dosage: 2 2 ORAL
     Route: 048
     Dates: start: 20000910, end: 20030910

REACTIONS (11)
  - ABNORMAL BEHAVIOUR [None]
  - CONVULSION [None]
  - DEVELOPMENTAL COORDINATION DISORDER [None]
  - DRUG WITHDRAWAL SYNDROME [None]
  - FAILURE TO THRIVE [None]
  - GASTROINTESTINAL DISORDER [None]
  - GASTROOESOPHAGEAL REFLUX DISEASE [None]
  - HYPERSENSITIVITY [None]
  - RESPIRATORY DISORDER [None]
  - SLEEP DISORDER [None]
  - SPEECH DISORDER DEVELOPMENTAL [None]
